FAERS Safety Report 7290471-8 (Version None)
Quarter: 2011Q1

REPORT INFORMATION
  Report Type: 
  Country: None (occurrence: None)
  Receive Date: 20110214
  Receipt Date: 20110209
  Transmission Date: 20110831
  Serious: No
  Sender: FDA-Public Use
  Company Number: US-PFIZER INC-2011029609

PATIENT
  Sex: Female

DRUGS (9)
  1. LOPRESSOR [Concomitant]
     Dosage: UNK
  2. MAGNESIUM [Concomitant]
     Dosage: UNK
  3. PROCARDIA [Suspect]
     Indication: HYPERTENSION
     Dosage: UNK
  4. FUROSEMIDE [Concomitant]
     Indication: DIURETIC THERAPY
     Dosage: UNK
  5. CALCIUM [Concomitant]
     Dosage: UNK
  6. ZANTAC [Concomitant]
     Dosage: UNK
  7. CARDIZEM [Suspect]
     Indication: HYPERTENSION
     Dosage: UNK
  8. CALAN [Suspect]
     Indication: HYPERTENSION
     Dosage: 360 MG, 2X/DAY
     Route: 048
  9. ATACAND [Concomitant]
     Dosage: UNK

REACTIONS (2)
  - MEDICATION ERROR [None]
  - RASH [None]
